FAERS Safety Report 25852479 (Version 1)
Quarter: 2025Q3

REPORT INFORMATION
  Report Type: Spontaneous
  Country: US (occurrence: US)
  Receive Date: 20250926
  Receipt Date: 20250926
  Transmission Date: 20251020
  Serious: No
  Sender: BAYER HEALTHCARE PHARMACEUTICALS INC.
  Company Number: US-BAYER-2025A127612

PATIENT
  Age: 19 Year
  Sex: Female

DRUGS (1)
  1. MIRENA [Suspect]
     Active Substance: LEVONORGESTREL
     Dosage: 20?G/DAY
     Route: 015
     Dates: start: 20250123

REACTIONS (4)
  - Device dislocation [Not Recovered/Not Resolved]
  - Road traffic accident [None]
  - Abdominal pain lower [None]
  - Genital haemorrhage [None]

NARRATIVE: CASE EVENT DATE: 20250924
